FAERS Safety Report 24086727 (Version 8)
Quarter: 2024Q4

REPORT INFORMATION
  Report Type: Report from Study
  Country: CA (occurrence: CA)
  Receive Date: 20240713
  Receipt Date: 20241103
  Transmission Date: 20250115
  Serious: Yes (Other)
  Sender: JOHNSON AND JOHNSON
  Company Number: CA-JNJFOC-20240665040

PATIENT
  Age: 71 Year
  Sex: Female

DRUGS (3)
  1. SELEXIPAG [Suspect]
     Active Substance: SELEXIPAG
     Indication: Pulmonary hypertension
     Route: 048
     Dates: start: 20240531
  2. SELEXIPAG [Suspect]
     Active Substance: SELEXIPAG
     Route: 048
     Dates: start: 20240805
  3. SELEXIPAG [Suspect]
     Active Substance: SELEXIPAG
     Dosage: 200 AM AND 400 PM
     Route: 048

REACTIONS (10)
  - Anaemia [Recovering/Resolving]
  - Diabetes mellitus [Not Recovered/Not Resolved]
  - Neuropathy peripheral [Not Recovered/Not Resolved]
  - Pruritus [Not Recovered/Not Resolved]
  - Vomiting [Unknown]
  - Diarrhoea [Not Recovered/Not Resolved]
  - Visual impairment [Not Recovered/Not Resolved]
  - Flushing [Unknown]
  - Gout [Recovering/Resolving]
  - Nausea [Unknown]

NARRATIVE: CASE EVENT DATE: 20240605
